FAERS Safety Report 9388585 (Version 1)
Quarter: 2013Q3

REPORT INFORMATION
  Report Type: Spontaneous
  Country: US (occurrence: US)
  Receive Date: 20130708
  Receipt Date: 20130708
  Transmission Date: 20140515
  Serious: Yes (Other)
  Sender: FDA-Public Use
  Company Number: US-JHP PHARMACEUTICALS, LLC-JHP201300436

PATIENT
  Age: 22 Year
  Sex: Male

DRUGS (5)
  1. KETALAR [Suspect]
     Indication: STATUS EPILEPTICUS
     Dosage: 7.5 MG/KG, HR
     Route: 042
  2. MIDAZOLAM [Concomitant]
     Indication: STATUS EPILEPTICUS
     Dosage: 2.5 MG/KG, HR
     Route: 042
  3. PHENYTOIN [Concomitant]
     Indication: STATUS EPILEPTICUS
     Route: 042
  4. LACOSAMIDE [Concomitant]
     Indication: STATUS EPILEPTICUS
  5. LEVETIRACETAM [Concomitant]
     Indication: STATUS EPILEPTICUS
     Route: 042

REACTIONS (2)
  - Off label use [Recovered/Resolved]
  - Acidosis [Recovered/Resolved]
